FAERS Safety Report 15084502 (Version 1)
Quarter: 2018Q2

REPORT INFORMATION
  Report Type: Spontaneous
  Country: FR (occurrence: FR)
  Receive Date: 20180628
  Receipt Date: 20180628
  Transmission Date: 20180711
  Serious: Yes (Hospitalization)
  Sender: FDA-Public Use
  Company Number: FR-TEVA-2018-FR-918268

PATIENT
  Age: 58 Year
  Sex: Male

DRUGS (1)
  1. IBUPROFENE [Suspect]
     Active Substance: IBUPROFEN
     Indication: PAIN
     Route: 048
     Dates: end: 201703

REACTIONS (2)
  - Erysipelas [Recovering/Resolving]
  - Staphylococcal abscess [Recovering/Resolving]

NARRATIVE: CASE EVENT DATE: 201703
